FAERS Safety Report 22252152 (Version 1)
Quarter: 2023Q2

REPORT INFORMATION
  Report Type: Other
  Country: CA (occurrence: CA)
  Receive Date: 20230425
  Receipt Date: 20230425
  Transmission Date: 20230722
  Serious: Yes (Death, Life-Threatening, Hospitalization, Other)
  Sender: FDA-Public Use
  Company Number: CA-CELLTRION INC.-2023CA008431

PATIENT

DRUGS (1)
  1. TRASTUZUMAB [Suspect]
     Active Substance: TRASTUZUMAB
     Indication: Hormone receptor positive HER2 negative breast cancer
     Dosage: 410 MILLIGRAM, 1 EVERY 3 WEEKS
     Route: 042

REACTIONS (5)
  - COVID-19 [Fatal]
  - Dyspnoea [Fatal]
  - General physical health deterioration [Fatal]
  - Hospitalisation [Fatal]
  - Off label use [Unknown]
